FAERS Safety Report 19378196 (Version 3)
Quarter: 2021Q4

REPORT INFORMATION
  Report Type: Report from Study
  Country: PR (occurrence: PR)
  Receive Date: 20210605
  Receipt Date: 20211117
  Transmission Date: 20220303
  Serious: Yes (Other)
  Sender: FDA-Public Use
  Company Number: PR-ABBVIE-21K-131-3934668-00

PATIENT
  Age: 83 Year
  Sex: Female
  Weight: 53.572 kg

DRUGS (3)
  1. RINVOQ [Suspect]
     Active Substance: UPADACITINIB
     Indication: Rheumatoid arthritis
     Route: 048
     Dates: start: 20200203
  2. TOZINAMERAN [Concomitant]
     Active Substance: TOZINAMERAN
     Indication: COVID-19
     Dosage: 1ST DOSE
     Route: 030
  3. TOZINAMERAN [Concomitant]
     Active Substance: TOZINAMERAN
     Dosage: 2ND DOSE
     Route: 030

REACTIONS (3)
  - Venous occlusion [Unknown]
  - Gait disturbance [Recovered/Resolved]
  - Livedo reticularis [Recovered/Resolved]
